FAERS Safety Report 23843889 (Version 1)
Quarter: 2024Q2

REPORT INFORMATION
  Report Type: Spontaneous
  Country: US (occurrence: US)
  Receive Date: 20240510
  Receipt Date: 20240510
  Transmission Date: 20240716
  Serious: No
  Sender: FDA-Public Use
  Company Number: US-SANOFI-02030518

PATIENT
  Age: 41 Year
  Sex: Female

DRUGS (3)
  1. LOVENOX [Suspect]
     Active Substance: ENOXAPARIN SODIUM
     Dosage: 30 MG
     Route: 042
  2. LOVENOX [Suspect]
     Active Substance: ENOXAPARIN SODIUM
     Dosage: 40 MG, QD
     Route: 042
  3. LOVENOX [Suspect]
     Active Substance: ENOXAPARIN SODIUM
     Dosage: AFTER THE FOUR WEEKS, SHE TOOK A BREAK FROM LOVENOX ^FOR ABOUT A WEEK^, THEN RESTARTED ABOUT 4 DAYS
     Route: 042

REACTIONS (1)
  - Paraesthesia [Unknown]
